FAERS Safety Report 8146376-3 (Version None)
Quarter: 2012Q1

REPORT INFORMATION
  Report Type: 
  Country: None (occurrence: None)
  Receive Date: 20120217
  Receipt Date: 20120216
  Transmission Date: 20120608
  Serious: Yes (Hospitalization)
  Sender: FDA-Public Use
  Company Number: CN-ROCHE-1040871

PATIENT
  Age: 56 Year
  Sex: Male
  Weight: 67.5 kg

DRUGS (5)
  1. MABTHERA [Suspect]
     Indication: B-CELL LYMPHOMA
     Route: 041
     Dates: start: 20111013, end: 20120105
  2. VINCRISTINE [Concomitant]
     Indication: B-CELL LYMPHOMA
     Route: 041
     Dates: start: 20111013, end: 20120105
  3. DOXORUBICIN HCL [Concomitant]
     Indication: B-CELL LYMPHOMA
     Route: 041
     Dates: start: 20111013, end: 20120105
  4. CYCLOPHOSPHAMIDE [Concomitant]
     Indication: B-CELL LYMPHOMA
     Route: 041
     Dates: start: 20111013, end: 20120105
  5. PREDNISONE [Concomitant]
     Indication: B-CELL LYMPHOMA
     Route: 048
     Dates: start: 20111013, end: 20120105

REACTIONS (2)
  - DRUG INEFFECTIVE [None]
  - SKIN LESION [None]
